FAERS Safety Report 23826884 (Version 1)
Quarter: 2024Q2

REPORT INFORMATION
  Report Type: Spontaneous
  Country: US (occurrence: US)
  Receive Date: 20240507
  Receipt Date: 20240507
  Transmission Date: 20240716
  Serious: Yes (Hospitalization)
  Sender: FDA-Public Use
  Company Number: US-MYLANLABS-2024M1040671

PATIENT
  Age: 56 Year
  Sex: Male

DRUGS (10)
  1. OXALIPLATIN [Suspect]
     Active Substance: OXALIPLATIN
     Indication: Colon cancer
     Dosage: UNK UNK, CYCLE, 12 CYCLES
     Route: 065
  2. LEUCOVORIN [Suspect]
     Active Substance: LEUCOVORIN\LEUCOVORIN CALCIUM
     Indication: Colon cancer
     Dosage: UNK UNK, CYCLE, 12 CYCLES
     Route: 065
  3. FLUOROURACIL [Suspect]
     Active Substance: FLUOROURACIL
     Indication: Colon cancer
     Dosage: UNK, CYCLE, 12 CYCLES
     Route: 065
  4. AMLODIPINE [Concomitant]
     Active Substance: AMLODIPINE BESYLATE
     Indication: Hypertension
     Dosage: UNK
     Route: 065
  5. ENALAPRIL [Concomitant]
     Active Substance: ENALAPRIL
     Indication: Hypertension
     Dosage: UNK
     Route: 065
  6. BUMETANIDE [Concomitant]
     Active Substance: BUMETANIDE
     Indication: Diabetes mellitus
     Dosage: UNK
     Route: 065
  7. HYDROCODONE [Concomitant]
     Active Substance: HYDROCODONE
     Indication: Pain
     Dosage: UNK
     Route: 065
  8. ACETAMINOPHEN [Concomitant]
     Active Substance: ACETAMINOPHEN
     Indication: Pain
     Dosage: UNK
     Route: 065
  9. LEVOTHYROXINE SODIUM [Concomitant]
     Active Substance: LEVOTHYROXINE SODIUM
     Indication: Hypothyroidism
     Dosage: UNK
     Route: 065
  10. PRAVASTATIN [Concomitant]
     Active Substance: PRAVASTATIN
     Indication: Hypercholesterolaemia
     Dosage: UNK
     Route: 065

REACTIONS (1)
  - Drug ineffective [Unknown]
